FAERS Safety Report 9422666 (Version 1)
Quarter: 2013Q3

REPORT INFORMATION
  Report Type: Spontaneous
  Country: GB (occurrence: GB)
  Receive Date: 20130726
  Receipt Date: 20130726
  Transmission Date: 20140515
  Serious: Yes (Disabling)
  Sender: FDA-Public Use
  Company Number: GB-PFIZER INC-2013195455

PATIENT
  Age: 32 Year
  Sex: Female
  Weight: 83.9 kg

DRUGS (4)
  1. NEURONTIN [Suspect]
     Indication: NEURALGIA
     Dosage: 100 MG, 3X/DAY
     Route: 048
     Dates: start: 20130422
  2. NEURONTIN [Suspect]
     Indication: VULVOVAGINAL PAIN
     Dosage: 300 MG, 3X/DAY
     Route: 048
  3. NEURONTIN [Suspect]
     Dosage: UNK
     Dates: start: 20130508, end: 20130520
  4. EPADERM [Concomitant]
     Dosage: UNK
     Dates: start: 20130422

REACTIONS (3)
  - Off label use [Unknown]
  - Ocular hyperaemia [Recovered/Resolved]
  - Eye pain [Recovered/Resolved]
